FAERS Safety Report 7381508-6 (Version None)
Quarter: 2011Q1

REPORT INFORMATION
  Report Type: 
  Country: None (occurrence: None)
  Receive Date: 20110329
  Receipt Date: 20110324
  Transmission Date: 20110831
  Serious: Yes (Other)
  Sender: FDA-Public Use
  Company Number: US-MERCK-1102USA01520

PATIENT
  Age: 70 Year
  Sex: Male

DRUGS (1)
  1. VYTORIN [Suspect]
     Indication: BLOOD CHOLESTEROL
     Route: 048

REACTIONS (4)
  - CARDIAC DISORDER [None]
  - HEADACHE [None]
  - DIZZINESS [None]
  - HYPOAESTHESIA [None]
